FAERS Safety Report 5935965-X (Version None)
Quarter: 2008Q4

REPORT INFORMATION
  Report Type: 
  Country: None (occurrence: None)
  Receive Date: 20081030
  Receipt Date: 20081022
  Transmission Date: 20090506
  Serious: Yes (Other)
  Sender: FDA-Public Use
  Company Number: JP-MERCK-0810USA04433

PATIENT
  Age: 82 Year
  Sex: Female

DRUGS (5)
  1. STROMECTOL [Suspect]
     Indication: ACARODERMATITIS
     Route: 048
     Dates: start: 20081010, end: 20081010
  2. LEVOMEPROMAZINE MALEATE [Suspect]
     Route: 048
  3. ADALAT [Concomitant]
     Route: 048
  4. MAGMITT [Concomitant]
     Route: 048
  5. PREDONINE [Concomitant]
     Indication: DERMATITIS EXFOLIATIVE
     Route: 065
     Dates: start: 20081003

REACTIONS (1)
  - DERMATITIS EXFOLIATIVE [None]
